FAERS Safety Report 4415926-2 (Version None)
Quarter: 2004Q3

REPORT INFORMATION
  Report Type: 
  Country: None (occurrence: None)
  Receive Date: 20040805
  Receipt Date: 20040616
  Transmission Date: 20050211
  Serious: No
  Sender: FDA-Public Use
  Company Number: US-GLAXOSMITHKLINE-A0514875A

PATIENT
  Age: 74 Year
  Sex: Female

DRUGS (2)
  1. AVANDAMET [Suspect]
     Dosage: 2MG PER DAY
     Route: 048
     Dates: start: 20040601, end: 20040601
  2. AVANDIA [Suspect]
     Route: 048
     Dates: start: 20030101, end: 20030101

REACTIONS (3)
  - ABDOMINAL PAIN UPPER [None]
  - DIARRHOEA [None]
  - WEIGHT INCREASED [None]
